FAERS Safety Report 5359656-1 (Version None)
Quarter: 2007Q2

REPORT INFORMATION
  Report Type: 
  Country: None (occurrence: None)
  Receive Date: 20070615
  Receipt Date: 20070606
  Transmission Date: 20071010
  Serious: Yes (Hospitalization)
  Sender: FDA-Public Use
  Company Number: US-ABBOTT-07P-163-0370928-00

PATIENT
  Sex: Male
  Weight: 83.99 kg

DRUGS (4)
  1. DEPAKOTE ER [Suspect]
     Indication: BIPOLAR I DISORDER
     Dates: start: 20060901
  2. OLANZAPINE [Concomitant]
     Indication: BIPOLAR DISORDER
     Route: 048
     Dates: start: 20060901
  3. LORAZEPAM [Concomitant]
     Indication: BIPOLAR DISORDER
     Route: 048
     Dates: start: 20061001
  4. LANSOPRAZOLE [Concomitant]
     Indication: DYSPEPSIA
     Route: 048
     Dates: start: 20070101

REACTIONS (5)
  - HYPOTHYROIDISM [None]
  - SOMNOLENCE [None]
  - TREATMENT NONCOMPLIANCE [None]
  - TREMOR [None]
  - WEIGHT INCREASED [None]
